FAERS Safety Report 5210693-7 (Version None)
Quarter: 2007Q1

REPORT INFORMATION
  Report Type: 
  Country: None (occurrence: None)
  Receive Date: 20070117
  Receipt Date: 20070112
  Transmission Date: 20070707
  Serious: Yes (Other)
  Sender: FDA-Public Use
  Company Number: US-GLAXOSMITHKLINE-B0454085A

PATIENT
  Age: 46 Year
  Sex: Female

DRUGS (1)
  1. EPOPROSTENOL SODIUM [Suspect]
     Indication: PULMONARY HYPERTENSION
     Dosage: 64NGKM UNKNOWN
     Route: 042

REACTIONS (5)
  - ACUTE RESPIRATORY FAILURE [None]
  - OXYGEN SATURATION DECREASED [None]
  - POLYURIA [None]
  - PULMONARY ARTERIAL WEDGE PRESSURE INCREASED [None]
  - PULMONARY OEDEMA [None]
